FAERS Safety Report 9555364 (Version 1)
Quarter: 2013Q3

REPORT INFORMATION
  Report Type: Spontaneous
  Country: US (occurrence: None)
  Receive Date: 20130724
  Receipt Date: 20130724
  Transmission Date: 20140515
  Serious: Yes (Other)
  Sender: FDA-Public Use
  Company Number: PHEH2013US005553

PATIENT
  Age: 50 Year
  Sex: Female

DRUGS (7)
  1. GILENYA (FINGOLIMOD) CAPSULE, 0.5MG [Suspect]
     Route: 048
     Dates: start: 20121030
  2. PROTONIX (PANITOPRAZOLE SODIUM SESQUIHYDRATE) [Concomitant]
  3. LIPITOR (ATORVASTATIN CALCIUM) [Concomitant]
  4. LEXAPRO (ESCITALOPRAM OXALATE) [Concomitant]
  5. MULTI-VIT (VITAMINS NOS) [Concomitant]
  6. VITAMIN D (ERGOCALCIFEROL) [Concomitant]
  7. FISH OIL (FISH OIL) [Concomitant]

REACTIONS (1)
  - Menopause [None]
